FAERS Safety Report 8827651 (Version 5)
Quarter: 2013Q3

REPORT INFORMATION
  Report Type: Report from Study
  Country: DE (occurrence: DE)
  Receive Date: 20121005
  Receipt Date: 20130702
  Transmission Date: 20140515
  Serious: Yes (Hospitalization, Other)
  Sender: FDA-Public Use
  Company Number: PHHY2012DE065843

PATIENT
  Sex: Male

DRUGS (1)
  1. GILENYA [Suspect]
     Indication: MULTIPLE SCLEROSIS
     Dosage: 0.5 MG, DAILY
     Route: 048
     Dates: start: 20120629

REACTIONS (6)
  - Paraesthesia [Recovering/Resolving]
  - Central nervous system lesion [Recovered/Resolved]
  - Memory impairment [Unknown]
  - Eye disorder [Recovered/Resolved]
  - Fatigue [Not Recovered/Not Resolved]
  - Lymphocyte count decreased [Unknown]
